FAERS Safety Report 7650323-8 (Version None)
Quarter: 2011Q3

REPORT INFORMATION
  Report Type: 
  Country: None (occurrence: None)
  Receive Date: 20110727
  Receipt Date: 20110711
  Transmission Date: 20111222
  Serious: Yes (Other)
  Sender: FDA-Public Use
  Company Number: 2011MA008585

PATIENT
  Age: 20 Year
  Sex: Male

DRUGS (5)
  1. ITRACONAZOLE [Concomitant]
  2. MYCOPHENOLATE MOFETIL [Concomitant]
  3. GANCICLOVIR [Concomitant]
  4. SULFATRIM PEDIATRIC [Suspect]
     Indication: PRODUCT USED FOR UNKNOWN INDICATION
  5. TACROLIMUS [Concomitant]

REACTIONS (4)
  - THROMBOCYTOPENIA [None]
  - NEUTROPENIA [None]
  - NEUTROPHIL PELGER-HUET ANOMALY PRESENT [None]
  - ANAEMIA [None]
